FAERS Safety Report 7465139-5 (Version None)
Quarter: 2011Q2

REPORT INFORMATION
  Report Type: 
  Country: None (occurrence: None)
  Receive Date: 20110505
  Receipt Date: 20110505
  Transmission Date: 20111010
  Serious: No
  Sender: FDA-Public Use
  Company Number: None

PATIENT
  Sex: Female
  Weight: 61.2356 kg

DRUGS (1)
  1. BONIVA [Suspect]
     Indication: OSTEOPOROSIS
     Dosage: 1ST PILL EVER MONTHLY ORAL
     Route: 048
     Dates: start: 20110415

REACTIONS (5)
  - ASTHENIA [None]
  - GASTROINTESTINAL DISORDER [None]
  - HEADACHE [None]
  - ARTHRALGIA [None]
  - MUSCLE SPASMS [None]
